FAERS Safety Report 24700317 (Version 1)
Quarter: 2024Q4

REPORT INFORMATION
  Report Type: Spontaneous
  Country: US (occurrence: US)
  Receive Date: 20241205
  Receipt Date: 20241205
  Transmission Date: 20250115
  Serious: Yes (Life-Threatening, Hospitalization, Other)
  Sender: ALKEM
  Company Number: US-ALKEM LABORATORIES LIMITED-US-ALKEM-2024-01043

PATIENT
  Age: 27 Year
  Sex: Female

DRUGS (1)
  1. METFORMIN HYDROCHLORIDE [Suspect]
     Active Substance: METFORMIN HYDROCHLORIDE
     Indication: Polycystic ovarian syndrome
     Dosage: 20 GRAM
     Route: 048

REACTIONS (4)
  - Drug level increased [Recovering/Resolving]
  - Lactic acidosis [Recovering/Resolving]
  - Hypotension [Unknown]
  - Overdose [Unknown]
